FAERS Safety Report 5352390-3 (Version None)
Quarter: 2007Q2

REPORT INFORMATION
  Report Type: 
  Country: None (occurrence: None)
  Receive Date: 20070607
  Receipt Date: 20070522
  Transmission Date: 20071010
  Serious: Yes (Other)
  Sender: FDA-Public Use
  Company Number: DSA_61480_2007

PATIENT
  Sex: Male

DRUGS (3)
  1. DIHYDROERGOTAMINE MESYLATE [Suspect]
     Indication: CLUSTER HEADACHE
     Dosage: (7 MG QD)
  2. TRITACE [Concomitant]
  3. ALDACTONE [Concomitant]

REACTIONS (2)
  - DRUG DEPENDENCE [None]
  - DRUG WITHDRAWAL SYNDROME [None]
